FAERS Safety Report 18845064 (Version 1)
Quarter: 2021Q1

REPORT INFORMATION
  Report Type: Spontaneous
  Country: CA (occurrence: CA)
  Receive Date: 20210204
  Receipt Date: 20210204
  Transmission Date: 20210419
  Serious: Yes (Hospitalization)
  Sender: FDA-Public Use
  Company Number: CA-UNITED THERAPEUTICS-UNT-2020-019273

PATIENT
  Age: 31 Year
  Sex: Female

DRUGS (6)
  1. REMODULIN [Suspect]
     Active Substance: TREPROSTINIL
     Indication: PULMONARY ARTERIAL HYPERTENSION
     Dosage: UNK, CONTINUING
     Route: 041
     Dates: start: 20200330
  2. REMODULIN [Suspect]
     Active Substance: TREPROSTINIL
     Dosage: UNK, AT INFUSION RATE 0.015 ML/HR, CONTINUING
     Route: 041
     Dates: start: 2020
  3. REMODULIN [Suspect]
     Active Substance: TREPROSTINIL
     Dosage: UNK, AT INFUSION RATE 1.7 ML/HR, CONTINUING
     Route: 041
     Dates: start: 20201212
  4. REMODULIN [Suspect]
     Active Substance: TREPROSTINIL
     Dosage: UNK (AT INFUSION RATE 1.8 ML/HR), CONTINUING
     Route: 041
  5. REMODULIN [Suspect]
     Active Substance: TREPROSTINIL
     Dosage: UNK, AT INFUSION RATE 0.013 ML/HR, CONTINUING
     Route: 041
     Dates: start: 2020
  6. REMODULIN [Suspect]
     Active Substance: TREPROSTINIL
     Dosage: UNK, AT INFUSION RATE 1.6 ML/HR, CONTINUING
     Route: 041
     Dates: start: 202012

REACTIONS (8)
  - Injection site swelling [Recovering/Resolving]
  - Injection site erythema [Not Recovered/Not Resolved]
  - Injection site reaction [Not Recovered/Not Resolved]
  - Staphylococcal infection [Recovered/Resolved]
  - Injection site pain [Recovering/Resolving]
  - Nausea [Unknown]
  - Headache [Not Recovered/Not Resolved]
  - Injection site discharge [Not Recovered/Not Resolved]

NARRATIVE: CASE EVENT DATE: 2020
